FAERS Safety Report 11555731 (Version 1)
Quarter: 2015Q3

REPORT INFORMATION
  Report Type: Spontaneous
  Country: US (occurrence: US)
  Receive Date: 20150903
  Receipt Date: 20150903
  Transmission Date: 20151125
  Serious: No
  Sender: FDA-Public Use
  Company Number: US-ELI_LILLY_AND_COMPANY-US201011004488

PATIENT
  Age: 64 Year
  Sex: Male

DRUGS (3)
  1. HUMALOG MIX75/25 [Suspect]
     Active Substance: INSULIN LISPRO
     Indication: DIABETES MELLITUS
     Dosage: 80 U, DAILY (1/D)
  2. HUMALOG MIX75/25 [Suspect]
     Active Substance: INSULIN LISPRO
     Indication: DIABETES MELLITUS
     Dosage: 80 U, DAILY (1/D)
     Dates: start: 20091115
  3. GLYBURIDE. [Concomitant]
     Active Substance: GLYBURIDE

REACTIONS (3)
  - Underdose [Unknown]
  - Injection site bruising [Unknown]
  - Drug dispensing error [Unknown]
